FAERS Safety Report 7314194-1 (Version None)
Quarter: 2011Q1

REPORT INFORMATION
  Report Type: 
  Country: None (occurrence: None)
  Receive Date: 20110225
  Receipt Date: 20100617
  Transmission Date: 20110831
  Serious: No
  Sender: FDA-Public Use
  Company Number: US-MYLANLABS-2010S1009865

PATIENT
  Age: 31 Year
  Sex: Female
  Weight: 86.18 kg

DRUGS (8)
  1. TRAZODONE HCL [Concomitant]
  2. FLURBIPROFEN [Concomitant]
     Route: 047
  3. AMNESTEEM [Suspect]
     Indication: ACNE CYSTIC
     Route: 048
     Dates: start: 20091215, end: 20100507
  4. ZOLPIDEM [Concomitant]
  5. LITHIUM CARBONATE [Concomitant]
  6. AMNESTEEM [Suspect]
     Route: 048
     Dates: start: 20091215, end: 20100507
  7. ACETAMINOPHEN AND HYDROCODONE BITARTRATE [Concomitant]
  8. RECLIPSEN [Concomitant]

REACTIONS (1)
  - BACK PAIN [None]
